FAERS Safety Report 25347986 (Version 3)
Quarter: 2025Q3

REPORT INFORMATION
  Report Type: Spontaneous
  Country: US (occurrence: US)
  Receive Date: 20250522
  Receipt Date: 20250718
  Transmission Date: 20251020
  Serious: No
  Sender: PFIZER
  Company Number: US-PFIZER INC-202500104321

PATIENT
  Age: 13 Year
  Sex: Male
  Weight: 45.7 kg

DRUGS (4)
  1. GENOTROPIN [Suspect]
     Active Substance: SOMATROPIN
     Indication: Growth hormone deficiency
     Dosage: 1.4 MG, DAILY INJECTION IN THIGHS ALTERNATING
     Route: 058
     Dates: start: 20250509
  2. GENOTROPIN [Suspect]
     Active Substance: SOMATROPIN
     Indication: Short stature
  3. PROZAC [Concomitant]
     Active Substance: FLUOXETINE HYDROCHLORIDE
     Indication: Anxiety
     Dosage: 40MG PILL EVERY MORNING, BY MOUTH
     Route: 048
  4. FLUOXETINE [Concomitant]
     Active Substance: FLUOXETINE HYDROCHLORIDE
     Indication: Anxiety
     Dosage: 40 MG, 1X/DAY

REACTIONS (4)
  - Drug dose omission by device [Recovered/Resolved]
  - Device mechanical issue [Recovered/Resolved]
  - Device leakage [Recovered/Resolved]
  - Device information output issue [Recovered/Resolved]

NARRATIVE: CASE EVENT DATE: 20250517
